FAERS Safety Report 7835140-8 (Version None)
Quarter: 2011Q4

REPORT INFORMATION
  Report Type: 
  Country: None (occurrence: None)
  Receive Date: 20111024
  Receipt Date: 20110916
  Transmission Date: 20120403
  Serious: Yes (Other)
  Sender: FDA-Public Use
  Company Number: PHHY2011BR86847

PATIENT
  Sex: Female
  Weight: 67 kg

DRUGS (3)
  1. GLYBURIDE [Concomitant]
     Indication: DIABETES MELLITUS
     Dosage: 5 MG, UNK
  2. FUROSEMIDE [Concomitant]
     Dosage: 40 MG, QD
  3. CAPTOPRIL [Suspect]
     Indication: HYPERTENSION
     Dosage: 50 MG, QD
     Route: 048

REACTIONS (5)
  - VENTRICULAR HYPERTROPHY [None]
  - HYPERTENSION [None]
  - RENAL FAILURE CHRONIC [None]
  - DIASTOLIC DYSFUNCTION [None]
  - OBESITY [None]
